FAERS Safety Report 21927543 (Version 1)
Quarter: 2023Q1

REPORT INFORMATION
  Report Type: Spontaneous
  Country: US (occurrence: None)
  Receive Date: 20230130
  Receipt Date: 20230130
  Transmission Date: 20230417
  Serious: Yes (Other)
  Sender: FDA-Public Use
  Company Number: None

PATIENT
  Age: 73 Year
  Sex: Male
  Weight: 66.15 kg

DRUGS (16)
  1. AXICABTAGENE CILOLEUCEL [Suspect]
     Active Substance: AXICABTAGENE CILOLEUCEL
     Indication: Follicular lymphoma
     Dosage: OTHER FREQUENCY : ONCE;?
     Route: 041
     Dates: start: 20221114, end: 20221114
  2. AMLODIPINE [Concomitant]
     Active Substance: AMLODIPINE BESYLATE
     Dates: start: 20221114, end: 20221124
  3. ATENOLOL [Concomitant]
     Active Substance: ATENOLOL
     Dates: start: 20221114, end: 20221120
  4. ATORVASTATIN [Concomitant]
     Active Substance: ATORVASTATIN
     Dates: start: 20221114, end: 20221123
  5. CHLORHEXIDINE [Concomitant]
     Active Substance: CHLORHEXIDINE
     Dates: start: 20221114, end: 20221123
  6. CIPROFLOXACIN [Concomitant]
     Active Substance: CIPROFLOXACIN
     Dates: start: 20221114, end: 20221124
  7. CITALOPRAM [Concomitant]
     Active Substance: CITALOPRAM HYDROBROMIDE
     Dates: start: 20221114, end: 20221124
  8. DICYCLOMINE [Concomitant]
     Active Substance: DICYCLOMINE HYDROCHLORIDE
     Dates: start: 20221116, end: 20221123
  9. ENOXAPARIN [Concomitant]
     Active Substance: ENOXAPARIN
     Dates: start: 20221114, end: 20221124
  10. FLUCONAZOLE [Concomitant]
     Active Substance: FLUCONAZOLE
     Dates: start: 20221114, end: 20221123
  11. LEVOTHYROXINE [Concomitant]
     Active Substance: LEVOTHYROXINE
     Dates: start: 20221115, end: 20221124
  12. LOPERAMIDE [Concomitant]
     Active Substance: LOPERAMIDE
     Dates: start: 20221120, end: 20221122
  13. MAGNESIUM [Concomitant]
     Active Substance: MAGNESIUM
     Dates: start: 20221116, end: 20221121
  14. POTASSIUM CHLORIDE [Concomitant]
     Active Substance: POTASSIUM CHLORIDE
     Dates: start: 20221115, end: 20221124
  15. supersaturated calcium phosphate rinse [Concomitant]
     Dates: start: 20221114, end: 20221124
  16. VALACYCLOVIR [Concomitant]
     Active Substance: VALACYCLOVIR HYDROCHLORIDE
     Dates: start: 20221114, end: 20221124

REACTIONS (2)
  - Infusion related reaction [None]
  - Cytokine release syndrome [None]

NARRATIVE: CASE EVENT DATE: 20221120
